FAERS Safety Report 4457627-0 (Version None)
Quarter: 2004Q3

REPORT INFORMATION
  Report Type: 
  Country: None (occurrence: None)
  Receive Date: 20040922
  Receipt Date: 20040913
  Transmission Date: 20050211
  Serious: Yes (Death, Hospitalization)
  Sender: FDA-Public Use
  Company Number: 04-09-1304

PATIENT
  Age: 56 Year
  Sex: Male

DRUGS (1)
  1. CLOZAPINE [Suspect]
     Dosage: 50MG QD ORAL
     Route: 048
     Dates: start: 20040701, end: 20040701

REACTIONS (1)
  - RENAL FAILURE [None]
